APPROVED DRUG PRODUCT: CYCLOSPORINE
Active Ingredient: CYCLOSPORINE
Strength: 25MG
Dosage Form/Route: CAPSULE;ORAL
Application: A216046 | Product #001 | TE Code: AB1
Applicant: ONESOURCE SPECIALTY PTE LTD
Approved: Aug 2, 2022 | RLD: No | RS: No | Type: RX